FAERS Safety Report 7465348-5 (Version None)
Quarter: 2011Q2

REPORT INFORMATION
  Report Type: 
  Country: None (occurrence: None)
  Receive Date: 20110509
  Receipt Date: 20110503
  Transmission Date: 20111010
  Serious: Yes (Hospitalization)
  Sender: FDA-Public Use
  Company Number: FR-BRISTOL-MYERS SQUIBB COMPANY-15717408

PATIENT
  Age: 40 Year
  Sex: Female

DRUGS (3)
  1. DEPAKOTE [Suspect]
  2. ABILIFY [Suspect]
     Indication: BIPOLAR DISORDER
     Dosage: DOSE INCREASED TO 30 MG
  3. LOXAPINE HCL [Suspect]

REACTIONS (2)
  - ANGIOEDEMA [None]
  - MANIA [None]
